FAERS Safety Report 7637218-0 (Version None)
Quarter: 2011Q3

REPORT INFORMATION
  Report Type: 
  Country: None (occurrence: None)
  Receive Date: 20110726
  Receipt Date: 20110711
  Transmission Date: 20111222
  Serious: Yes (Hospitalization)
  Sender: FDA-Public Use
  Company Number: PHHY2011TN63325

PATIENT
  Age: 62 Year
  Sex: Male

DRUGS (2)
  1. GLEEVEC [Suspect]
     Indication: GASTROINTESTINAL STROMAL TUMOUR
     Dosage: 400 MG PER DAY
     Route: 048
     Dates: start: 20101001, end: 20110301
  2. GLEEVEC [Suspect]
     Dosage: 800 MG PER DAY
     Route: 048
     Dates: start: 20110301

REACTIONS (5)
  - GASTROINTESTINAL STROMAL TUMOUR [None]
  - BONE LESION [None]
  - NEOPLASM MALIGNANT [None]
  - METASTASES TO LIVER [None]
  - TOOTH ABSCESS [None]
